FAERS Safety Report 4280393-9 (Version None)
Quarter: 2004Q1

REPORT INFORMATION
  Report Type: 
  Country: None (occurrence: None)
  Receive Date: 20040127
  Receipt Date: 20040112
  Transmission Date: 20041129
  Serious: Yes (Other)
  Sender: FDA-Public Use
  Company Number: 2004195156GB

PATIENT
  Age: 29 Year
  Sex: Female
  Weight: 58 kg

DRUGS (8)
  1. DEPO-MEDRONE (METHYLPREDNISOLONE) SUSPENSION, STERILE [Suspect]
     Indication: KIDNEY TRANSPLANT REJECTION
  2. DELTA-CORTEF [Suspect]
     Indication: KIDNEY TRANSPLANT REJECTION
     Dosage: 10 MG,
  3. CYCLOSPORINE [Concomitant]
  4. LABETALOL HCL [Concomitant]
  5. ASPIRIN [Concomitant]
  6. FRAGMIN [Concomitant]
  7. HEPARIN [Concomitant]
  8. VANCOMYCIN [Concomitant]

REACTIONS (12)
  - BLOOD CREATININE INCREASED [None]
  - BLOOD IMMUNOGLOBULIN M [None]
  - CAESAREAN SECTION [None]
  - CARDIOLIPIN ANTIBODY POSITIVE [None]
  - COMPLICATIONS OF MATERNAL EXPOSURE TO THERAPEUTIC DRUGS [None]
  - COMPLICATIONS OF TRANSPLANT SURGERY [None]
  - GLYCOPEPTIDE ANTIBIOTIC RESISTANT ENTEROCOCCAL INFECTION [None]
  - HAEMODIALYSIS [None]
  - PREGNANCY [None]
  - PREMATURE BABY [None]
  - STAPHYLOCOCCAL SEPSIS [None]
  - URINARY TRACT INFECTION [None]
